FAERS Safety Report 5859446-7 (Version None)
Quarter: 2008Q3

REPORT INFORMATION
  Report Type: 
  Country: None (occurrence: None)
  Receive Date: 20080826
  Receipt Date: 20080826
  Transmission Date: 20090109
  Serious: Yes (Life-Threatening)
  Sender: FDA-Public Use
  Company Number: None

PATIENT
  Age: 66 Year
  Sex: Female
  Weight: 87 kg

DRUGS (2)
  1. PROPOFOL [Suspect]
     Indication: COLONOSCOPY
     Dosage: 50 MG ONCE IV BOLUS, 25 MG ONCE IV BOLUS
     Route: 040
     Dates: start: 20080623, end: 20080623
  2. PROPOFOL [Suspect]
     Indication: SEDATION
     Dosage: 50 MG ONCE IV BOLUS, 25 MG ONCE IV BOLUS
     Route: 040
     Dates: start: 20080623, end: 20080623

REACTIONS (6)
  - BLOOD PRESSURE DECREASED [None]
  - CARDIAC ARREST [None]
  - CARDIO-RESPIRATORY ARREST [None]
  - HEART RATE DECREASED [None]
  - OXYGEN SATURATION DECREASED [None]
  - SINUS TACHYCARDIA [None]
